FAERS Safety Report 15275230 (Version 1)
Quarter: 2018Q3

REPORT INFORMATION
  Report Type: Report from Study
  Country: CA (occurrence: CA)
  Receive Date: 20180814
  Receipt Date: 20180814
  Transmission Date: 20181010
  Serious: Yes (Other)
  Sender: FDA-Public Use
  Company Number: CA-BAYER-2018-003482

PATIENT
  Age: 84 Year
  Sex: Female

DRUGS (3)
  1. ADEMPAS [Suspect]
     Active Substance: RIOCIGUAT
     Indication: PULMONARY HYPERTENSION
     Dosage: 1 MG, TID
     Route: 048
     Dates: start: 20161028
  2. ADEMPAS [Suspect]
     Active Substance: RIOCIGUAT
     Indication: PULMONARY HYPERTENSION
     Dosage: UNK
  3. ADEMPAS [Suspect]
     Active Substance: RIOCIGUAT
     Indication: PULMONARY HYPERTENSION
     Dosage: 1 MG, TID
     Dates: start: 20180731

REACTIONS (22)
  - Blood pressure diastolic decreased [None]
  - Cough [Not Recovered/Not Resolved]
  - Dyspnoea [None]
  - Fatigue [Unknown]
  - Loss of personal independence in daily activities [Unknown]
  - Face injury [Unknown]
  - Blood pressure diastolic decreased [Unknown]
  - Dizziness [Not Recovered/Not Resolved]
  - Hypertension [Unknown]
  - Blood pressure systolic decreased [Unknown]
  - Lower limb fracture [Unknown]
  - Blood pressure decreased [Unknown]
  - Blood pressure diastolic decreased [None]
  - Dizziness [Unknown]
  - Balance disorder [Not Recovered/Not Resolved]
  - Balance disorder [Unknown]
  - Fall [None]
  - Blood pressure increased [Recovering/Resolving]
  - Feeling abnormal [Not Recovered/Not Resolved]
  - Blood pressure diastolic decreased [Unknown]
  - Nasopharyngitis [Not Recovered/Not Resolved]
  - Joint injury [Unknown]

NARRATIVE: CASE EVENT DATE: 201712
